FAERS Safety Report 4778424-2 (Version None)
Quarter: 2005Q3

REPORT INFORMATION
  Report Type: 
  Country: None (occurrence: None)
  Receive Date: 20050926
  Receipt Date: 20050913
  Transmission Date: 20060218
  Serious: Yes (Hospitalization)
  Sender: FDA-Public Use
  Company Number: EMADSS2001004386

PATIENT
  Sex: Female

DRUGS (5)
  1. EPITOMAX [Suspect]
     Indication: EPILEPSY
     Route: 048
  2. TEGRETOL [Concomitant]
     Route: 065
  3. SPECIAFOLDINE [Concomitant]
     Route: 065
  4. UVEDOSE [Concomitant]
     Route: 065
     Dates: start: 20010706, end: 20020213
  5. URBANYL [Concomitant]
     Route: 065

REACTIONS (2)
  - DRUG EXPOSURE DURING PREGNANCY [None]
  - FOETAL MONITORING [None]
